FAERS Safety Report 5742685-3 (Version None)
Quarter: 2008Q2

REPORT INFORMATION
  Report Type: 
  Country: None (occurrence: None)
  Receive Date: 20080519
  Receipt Date: 20080508
  Transmission Date: 20081010
  Serious: Yes (Hospitalization)
  Sender: FDA-Public Use
  Company Number: A0725662A

PATIENT
  Age: 47 Year
  Sex: Female
  Weight: 77.8 kg

DRUGS (6)
  1. LAPATINIB [Suspect]
     Dosage: 1250MG PER DAY
     Route: 048
     Dates: start: 20080301
  2. XELODA [Suspect]
     Dosage: 2000MGM2 CYCLIC
     Route: 048
     Dates: start: 20080301
  3. FUROSEMIDE [Suspect]
     Dosage: 40MG TWICE PER DAY
     Route: 048
     Dates: start: 20080418
  4. VALPROATE SODIUM [Concomitant]
     Dosage: 500MG TWICE PER DAY
     Route: 048
     Dates: start: 20070501
  5. KEPPRA [Concomitant]
     Dosage: 500MG TWO TIMES PER WEEK
     Route: 048
     Dates: start: 20070501
  6. DECORTIN [Concomitant]
     Dosage: 4MG PER DAY
     Route: 048
     Dates: start: 20070501

REACTIONS (6)
  - APHASIA [None]
  - GENERAL PHYSICAL HEALTH DETERIORATION [None]
  - HYPOCALCAEMIA [None]
  - HYPOKALAEMIA [None]
  - MUSCLE SPASMS [None]
  - PARAESTHESIA [None]
